FAERS Safety Report 7936919-4 (Version None)
Quarter: 2011Q4

REPORT INFORMATION
  Report Type: 
  Country: None (occurrence: None)
  Receive Date: 20111123
  Receipt Date: 20111121
  Transmission Date: 20120403
  Serious: No
  Sender: FDA-Public Use
  Company Number: US-PFIZER INC-2011284844

PATIENT
  Sex: Female

DRUGS (2)
  1. IBUPROFEN (ADVIL) [Suspect]
     Indication: PROCEDURAL PAIN
     Dosage: UNK
     Dates: start: 20111001
  2. HYDROCODONE [Suspect]
     Indication: PROCEDURAL PAIN
     Dosage: UNK

REACTIONS (3)
  - DRUG INEFFECTIVE [None]
  - HEADACHE [None]
  - DIZZINESS [None]
